FAERS Safety Report 25177956 (Version 1)
Quarter: 2025Q2

REPORT INFORMATION
  Report Type: Spontaneous
  Country: ET (occurrence: ET)
  Receive Date: 20250409
  Receipt Date: 20250409
  Transmission Date: 20250717
  Serious: Yes (Hospitalization, Other)
  Sender: ACCORD
  Company Number: ET-Accord-478147

PATIENT
  Age: 12 Year
  Sex: Male

DRUGS (2)
  1. METHOTREXATE [Suspect]
     Active Substance: METHOTREXATE
     Indication: Dermatomyositis
  2. FOLIC ACID [Concomitant]
     Active Substance: FOLIC ACID
     Indication: Dermatomyositis

REACTIONS (1)
  - Pyomyositis [Recovered/Resolved]
